FAERS Safety Report 5987052-2 (Version None)
Quarter: 2008Q4

REPORT INFORMATION
  Report Type: 
  Country: None (occurrence: None)
  Receive Date: 20081209
  Receipt Date: 20081203
  Transmission Date: 20090506
  Serious: No
  Sender: FDA-Public Use
  Company Number: ES-EISAI MEDICAL RESEARCH-E2090-00606-SPO-ES

PATIENT
  Age: 64 Year
  Sex: Female

DRUGS (8)
  1. ZONEGRAN [Suspect]
     Indication: FIBROMYALGIA
     Route: 048
     Dates: start: 20080708
  2. IBUPROFEN TABLETS [Suspect]
     Indication: DRUG USE FOR UNKNOWN INDICATION
     Route: 048
     Dates: start: 20080708
  3. ZYTRAM [Suspect]
     Indication: DRUG USE FOR UNKNOWN INDICATION
     Route: 048
     Dates: start: 20080708
  4. ADALAT [Concomitant]
     Route: 048
     Dates: start: 20080509
  5. ARCOXIA [Concomitant]
     Route: 048
     Dates: start: 20080509
  6. CAPSICUM RESIN 0.025% [Concomitant]
     Route: 061
     Dates: start: 20080429
  7. INDAPAMIDE [Concomitant]
     Route: 048
     Dates: start: 20080711
  8. OMEPRAZOLE [Concomitant]
     Route: 048
     Dates: start: 20080509

REACTIONS (3)
  - ANDROGENETIC ALOPECIA [None]
  - HYPERHIDROSIS [None]
  - PRURITUS [None]
